FAERS Safety Report 7327662-3 (Version None)
Quarter: 2011Q1

REPORT INFORMATION
  Report Type: 
  Country: None (occurrence: None)
  Receive Date: 20110303
  Receipt Date: 20100913
  Transmission Date: 20110831
  Serious: Yes (Hospitalization)
  Sender: FDA-Public Use
  Company Number: US-BAYER-200940983NA

PATIENT
  Sex: Female
  Weight: 96 kg

DRUGS (4)
  1. YAZ [Suspect]
     Dosage: UNK
     Dates: start: 20090716, end: 20100104
  2. YAZ [Suspect]
     Dosage: UNK
     Dates: start: 20080709, end: 20090520
  3. OCELLA [Suspect]
     Indication: CONTRACEPTION
     Dosage: UNK
     Dates: start: 20090616, end: 20090714
  4. YASMIN [Suspect]
     Dosage: UNK
     Dates: start: 20080310, end: 20080603

REACTIONS (3)
  - CHOLECYSTITIS [None]
  - PAIN [None]
  - CHOLELITHIASIS [None]
